FAERS Safety Report 7898027-0 (Version None)
Quarter: 2011Q4

REPORT INFORMATION
  Report Type: 
  Country: None (occurrence: None)
  Receive Date: 20111107
  Receipt Date: 20111107
  Transmission Date: 20120403
  Serious: Yes (Life-Threatening)
  Sender: FDA-Public Use
  Company Number: None

PATIENT
  Age: 54 Year
  Sex: Female
  Weight: 123.37 kg

DRUGS (1)
  1. ZYLET [Suspect]
     Indication: SURGERY
     Dosage: ONE DROP
     Route: 047
     Dates: start: 20111104, end: 20111104

REACTIONS (1)
  - THROAT TIGHTNESS [None]
